FAERS Safety Report 7528081-7 (Version None)
Quarter: 2011Q2

REPORT INFORMATION
  Report Type: 
  Country: None (occurrence: None)
  Receive Date: 20110607
  Receipt Date: 20110530
  Transmission Date: 20111010
  Serious: No
  Sender: FDA-Public Use
  Company Number: BR-SANOFI-AVENTIS-2011SA014824

PATIENT
  Sex: Male
  Weight: 87 kg

DRUGS (8)
  1. FUROSEMIDE [Concomitant]
     Indication: DIURETIC THERAPY
     Route: 048
     Dates: start: 20060101
  2. NOVORAPID [Concomitant]
     Indication: TYPE 2 DIABETES MELLITUS
  3. LANTUS [Suspect]
     Indication: TYPE 2 DIABETES MELLITUS
     Route: 058
     Dates: start: 20050101
  4. GLYBURIDE [Concomitant]
     Indication: TYPE 2 DIABETES MELLITUS
     Route: 048
  5. SIMVASTATIN [Concomitant]
     Route: 048
  6. METOPROLOL SUCCINATE [Concomitant]
     Indication: BLOOD PRESSURE
     Route: 048
  7. DIOVANE [Concomitant]
     Indication: BLOOD PRESSURE
     Route: 048
  8. AUTOPEN 24 [Suspect]

REACTIONS (2)
  - IRRITABILITY [None]
  - HYPERGLYCAEMIA [None]
